FAERS Safety Report 5712697-4 (Version None)
Quarter: 2008Q2

REPORT INFORMATION
  Report Type: 
  Country: None (occurrence: None)
  Receive Date: 20080418
  Receipt Date: 20080409
  Transmission Date: 20081010
  Serious: Yes (Hospitalization)
  Sender: FDA-Public Use
  Company Number: CHPA2008US06509

PATIENT
  Age: 7 Year
  Sex: Female
  Weight: 31.7 kg

DRUGS (1)
  1. TRIAMINIC SRT [Suspect]
     Indication: COUGH
     Dosage: 2 TSP, ONCE/SINGLE, ORAL
     Route: 048
     Dates: start: 20070801, end: 20070801

REACTIONS (3)
  - LOSS OF CONSCIOUSNESS [None]
  - SYNCOPE VASOVAGAL [None]
  - URINARY INCONTINENCE [None]
